FAERS Safety Report 4975606-1 (Version None)
Quarter: 2006Q1

REPORT INFORMATION
  Report Type: 
  Country: None (occurrence: None)
  Receive Date: 20060222
  Receipt Date: 20050613
  Transmission Date: 20060701
  Serious: Yes (Other)
  Sender: FDA-Public Use
  Company Number: HQWYE787607DEC04

PATIENT
  Age: 73 Year
  Sex: Female
  Weight: 69.01 kg

DRUGS (5)
  1. PROTONIX [Suspect]
     Indication: ABDOMINAL PAIN UPPER
     Dosage: 40 MG 1X PER 1 DAY, ORAL
     Route: 048
     Dates: start: 20020401, end: 20020601
  2. PROTONIX [Suspect]
     Indication: ABDOMINAL PAIN UPPER
     Dosage: 40 MG 1X PER 1 DAY, ORAL
     Route: 048
     Dates: start: 20041118, end: 20041122
  3. LIPITOR [Suspect]
     Indication: BLOOD CHOLESTEROL INCREASED
     Dosage: UNKNOWN
     Route: 065
     Dates: end: 20020601
  4. PLAVIX [Concomitant]
  5. NORVASC [Concomitant]

REACTIONS (5)
  - ASTHENIA [None]
  - DIFFICULTY IN WALKING [None]
  - DIZZINESS [None]
  - TREMOR [None]
  - VERTIGO [None]
